FAERS Safety Report 16477515 (Version 1)
Quarter: 2019Q2

REPORT INFORMATION
  Report Type: Spontaneous
  Country: IL (occurrence: IL)
  Receive Date: 20190626
  Receipt Date: 20190626
  Transmission Date: 20190711
  Serious: Yes (Other)
  Sender: FDA-Public Use
  Company Number: PHHY2019IL144923

PATIENT
  Age: 69 Year
  Sex: Male

DRUGS (2)
  1. CERTICAN [Suspect]
     Active Substance: EVEROLIMUS
     Indication: RENAL TRANSPLANT
     Dosage: UNK, 15 MONTHS AGO
     Route: 048
  2. AVASTIN [Suspect]
     Active Substance: BEVACIZUMAB
     Indication: PRODUCT USED FOR UNKNOWN INDICATION
     Route: 065

REACTIONS (2)
  - Proteinuria [Unknown]
  - Product use in unapproved indication [Unknown]
